FAERS Safety Report 5578507-3 (Version None)
Quarter: 2007Q4

REPORT INFORMATION
  Report Type: 
  Country: None (occurrence: None)
  Receive Date: 20071227
  Receipt Date: 20061005
  Transmission Date: 20080405
  Serious: Yes (Other)
  Sender: FDA-Public Use
  Company Number: 2006VX001690

PATIENT
  Age: 43 Year
  Sex: Male

DRUGS (11)
  1. CESAMET [Suspect]
     Dosage: 1 MG; PO
     Route: 048
  2. MARIJUANA (CANNABIS) [Suspect]
  3. BETASERON [Suspect]
     Dosage: 8000000 IU;QOD;SC
     Route: 058
  4. NEURONTIN [Concomitant]
  5. MINOCYCLINE HCL [Concomitant]
  6. SIMVASTATIN [Concomitant]
  7. TOPAMAX [Concomitant]
  8. EFFEXOR [Concomitant]
  9. BACLOFEN [Concomitant]
  10. CYCLOBENZAPRINE HCL [Concomitant]
  11. ZOPICLONE [Concomitant]

REACTIONS (11)
  - AMNESIA [None]
  - APNOEA [None]
  - CONFUSIONAL STATE [None]
  - CONVULSION [None]
  - FALL [None]
  - IMPULSIVE BEHAVIOUR [None]
  - INSOMNIA [None]
  - LOSS OF CONSCIOUSNESS [None]
  - RIB FRACTURE [None]
  - VERTIGO [None]
  - VOMITING [None]
